FAERS Safety Report 6204662-8 (Version None)
Quarter: 2009Q2

REPORT INFORMATION
  Report Type: 
  Country: None (occurrence: None)
  Receive Date: 20090521
  Receipt Date: 20090512
  Transmission Date: 20091009
  Serious: Yes (Hospitalization)
  Sender: FDA-Public Use
  Company Number: WAES 0905USA01901

PATIENT
  Age: 60 Year
  Sex: Female

DRUGS (6)
  1. PEPCID [Suspect]
     Dosage: PO
     Route: 048
  2. TAB SELECTOL (CELIPROLOL HCL) [Suspect]
     Indication: HYPERTENSION
     Dosage: 100 MG/ PO
     Route: 048
  3. GLICLAZIDE [Concomitant]
  4. NIFEDIPINE [Concomitant]
  5. TELMISARTAN [Concomitant]
  6. VOGLIBOSE [Concomitant]

REACTIONS (1)
  - CEREBRAL INFARCTION [None]
